FAERS Safety Report 9363612 (Version 1)
Quarter: 2013Q2

REPORT INFORMATION
  Report Type: Report from Study
  Country: BR (occurrence: BR)
  Receive Date: 20130624
  Receipt Date: 20130624
  Transmission Date: 20140414
  Serious: Yes (Death)
  Sender: FDA-Public Use
  Company Number: PHHY2013BR064140

PATIENT
  Sex: Male

DRUGS (1)
  1. DIOVAN [Suspect]
     Dosage: 160 MG, UNK

REACTIONS (5)
  - Death [Fatal]
  - Cardiac disorder [Unknown]
  - Angiopathy [Unknown]
  - Pain in extremity [Unknown]
  - Local swelling [Unknown]
